FAERS Safety Report 10722864 (Version 3)
Quarter: 2015Q1

REPORT INFORMATION
  Report Type: Spontaneous
  Country: US (occurrence: US)
  Receive Date: 20150120
  Receipt Date: 20150331
  Transmission Date: 20150721
  Serious: No
  Sender: FDA-Public Use
  Company Number: US-BIOGENIDEC-2015BI004100

PATIENT
  Age: 23 Year
  Sex: Female

DRUGS (2)
  1. TYSABRI [Suspect]
     Active Substance: NATALIZUMAB
     Indication: MULTIPLE SCLEROSIS
     Route: 042
     Dates: start: 20140820
  2. TYSABRI [Suspect]
     Active Substance: NATALIZUMAB
     Indication: MULTIPLE SCLEROSIS
     Route: 042
     Dates: start: 20130801

REACTIONS (11)
  - Weight decreased [Recovered/Resolved]
  - Nausea [Recovered/Resolved]
  - Head discomfort [Not Recovered/Not Resolved]
  - Visual impairment [Recovered/Resolved]
  - Hyperphagia [Not Recovered/Not Resolved]
  - Multiple sclerosis [Not Recovered/Not Resolved]
  - Headache [Recovered/Resolved]
  - Tremor [Not Recovered/Not Resolved]
  - Decreased activity [Not Recovered/Not Resolved]
  - Optic neuritis [Not Recovered/Not Resolved]
  - Swelling [Not Recovered/Not Resolved]

NARRATIVE: CASE EVENT DATE: 2014
